FAERS Safety Report 11297944 (Version 1)
Quarter: 2015Q3

REPORT INFORMATION
  Report Type: Spontaneous
  Country: US (occurrence: US)
  Receive Date: 20150722
  Receipt Date: 20150722
  Transmission Date: 20151125
  Serious: No
  Sender: FDA-Public Use
  Company Number: US-ELI_LILLY_AND_COMPANY-US201011007258

PATIENT
  Sex: Male

DRUGS (3)
  1. HUMATROPE [Suspect]
     Active Substance: SOMATROPIN
     Dosage: 3.2 OR 3.4 MG, DAILY (1/D)
     Route: 065
  2. ARIMIDEX [Concomitant]
     Active Substance: ANASTROZOLE
     Dosage: 1 MG, DAILY (1/D)
     Route: 048
  3. HUMATROPE [Suspect]
     Active Substance: SOMATROPIN
     Dosage: 3.2 OR 3.4 MG, DAILY (1/D)
     Route: 065
     Dates: start: 2008

REACTIONS (2)
  - Drug dose omission [Unknown]
  - Product preparation error [Unknown]
